FAERS Safety Report 4897085-5 (Version None)
Quarter: 2005Q4

REPORT INFORMATION
  Report Type: 
  Country: None (occurrence: None)
  Receive Date: 20051228
  Receipt Date: 20050719
  Transmission Date: 20060501
  Serious: Yes (Hospitalization, Disabling, Other)
  Sender: FDA-Public Use
  Company Number: USA0507103127

PATIENT
  Age: 37 Year
  Sex: Male
  Weight: 79 kg

DRUGS (3)
  1. HUMALOG [Suspect]
     Indication: DIABETES MELLITUS
     Dates: start: 20010101
  2. HUMULIN N [Suspect]
     Indication: DIABETES MELLITUS
     Dosage: 80 U DAY
     Dates: start: 19800101
  3. HUMULIN R [Suspect]

REACTIONS (3)
  - BLOOD GLUCOSE DECREASED [None]
  - BLOOD GLUCOSE INCREASED [None]
  - COMA [None]
